FAERS Safety Report 18327091 (Version 2)
Quarter: 2020Q4

REPORT INFORMATION
  Report Type: Spontaneous
  Country: JP (occurrence: JP)
  Receive Date: 20200929
  Receipt Date: 20201013
  Transmission Date: 20210113
  Serious: Yes (Other)
  Sender: FDA-Public Use
  Company Number: JP-JNJFOC-20200935742

PATIENT
  Age: 5 Decade
  Sex: Male

DRUGS (14)
  1. ABACAVIR SULFATE + LAMIVUDINE [Concomitant]
     Active Substance: ABACAVIR SULFATE\LAMIVUDINE
     Dosage: DOSE UNKNOWN
     Route: 048
  2. RITONAVIR. [Concomitant]
     Active Substance: RITONAVIR
     Dosage: DOSE UNKNOWN
     Route: 048
  3. PREZISTA [Suspect]
     Active Substance: DARUNAVIR ETHANOLATE
     Dosage: DOSE UNKNOWN
     Route: 048
     Dates: end: 2014
  4. ABACAVIR SULFATE + LAMIVUDINE [Concomitant]
     Active Substance: ABACAVIR SULFATE\LAMIVUDINE
     Dosage: DOSE UNKNOWN
     Route: 048
     Dates: start: 2009, end: 2011
  5. RITONAVIR. [Concomitant]
     Active Substance: RITONAVIR
     Dosage: DOSE UNKNOWN
     Route: 048
     Dates: end: 2014
  6. RITONAVIR. [Concomitant]
     Active Substance: RITONAVIR
     Dosage: DOSE UNKNOWN
     Route: 048
     Dates: end: 2016
  7. ABACAVIR SULFATE + LAMIVUDINE [Concomitant]
     Active Substance: ABACAVIR SULFATE\LAMIVUDINE
     Dosage: DOSE UNKNOWN
     Route: 048
     Dates: end: 2013
  8. PREZISTA [Suspect]
     Active Substance: DARUNAVIR ETHANOLATE
     Dosage: DOSE UNKNOWN
     Route: 048
     Dates: end: 2013
  9. ABACAVIR SULFATE + LAMIVUDINE [Concomitant]
     Active Substance: ABACAVIR SULFATE\LAMIVUDINE
     Dosage: DOSE UNKNOWN
     Route: 048
     Dates: end: 2016
  10. PREZISTA [Suspect]
     Active Substance: DARUNAVIR ETHANOLATE
     Indication: PRODUCT USED FOR UNKNOWN INDICATION
     Dosage: DOSE UNKNOWN
     Route: 048
     Dates: start: 2009, end: 2011
  11. RITONAVIR. [Concomitant]
     Active Substance: RITONAVIR
     Dosage: DOSE UNKNOWN
     Route: 048
     Dates: start: 2009, end: 2011
  12. ABACAVIR SULFATE + LAMIVUDINE [Concomitant]
     Active Substance: ABACAVIR SULFATE\LAMIVUDINE
     Dosage: DOSE UNKNOWN
     Route: 048
     Dates: end: 2014
  13. PREZISTA [Suspect]
     Active Substance: DARUNAVIR ETHANOLATE
     Dosage: DOSE UNKNOWN
     Route: 048
     Dates: start: 20150917, end: 2016
  14. RITONAVIR. [Concomitant]
     Active Substance: RITONAVIR
     Dosage: DOSE UNKNOWN
     Route: 048
     Dates: end: 2013

REACTIONS (2)
  - Organising pneumonia [Unknown]
  - Pneumocystis jirovecii pneumonia [Unknown]
